FAERS Safety Report 5157581-2 (Version None)
Quarter: 2006Q4

REPORT INFORMATION
  Report Type: 
  Country: None (occurrence: None)
  Receive Date: 20061127
  Receipt Date: 20061120
  Transmission Date: 20070319
  Serious: Yes (Hospitalization)
  Sender: FDA-Public Use
  Company Number: 2006R082579

PATIENT
  Age: 10 Year
  Sex: Male

DRUGS (3)
  1. CEFUROXIM-RATIOPHARM [Suspect]
     Indication: TONSILLITIS
     Route: 048
     Dates: start: 20060314, end: 20060301
  2. AMOXICILLIN [Concomitant]
     Indication: TONSILLITIS
     Route: 048
     Dates: start: 20060201, end: 20060201
  3. PHENOXYMETHYL PENICILLIN [Concomitant]
     Route: 048
     Dates: start: 20060330, end: 20060408

REACTIONS (3)
  - ABDOMINAL PAIN [None]
  - DIARRHOEA [None]
  - GENERAL PHYSICAL HEALTH DETERIORATION [None]
